FAERS Safety Report 6060763-9 (Version None)
Quarter: 2009Q1

REPORT INFORMATION
  Report Type: 
  Country: None (occurrence: None)
  Receive Date: 20090129
  Receipt Date: 20090129
  Transmission Date: 20090719
  Serious: No
  Sender: FDA-Public Use
  Company Number: None

PATIENT
  Sex: Female
  Weight: 63.7 kg

DRUGS (5)
  1. NEORAL [Suspect]
     Indication: LIVER TRANSPLANT
     Dosage: 100 MG ONCE PO BID
     Route: 048
     Dates: start: 20080701
  2. URSODIOL [Concomitant]
  3. MAG+ PROTEIN [Concomitant]
  4. ASPICOL [Concomitant]
  5. IRON [Concomitant]

REACTIONS (1)
  - NO ADVERSE EVENT [None]
